FAERS Safety Report 25849835 (Version 1)
Quarter: 2025Q3

REPORT INFORMATION
  Report Type: Spontaneous
  Country: US (occurrence: US)
  Receive Date: 20250926
  Receipt Date: 20250926
  Transmission Date: 20251021
  Serious: Yes (Other)
  Sender: BRISTOL-MYERS SQUIBB COMPANY
  Company Number: US-BRISTOL-MYERS SQUIBB COMPANY-2025-131678

PATIENT
  Age: 84 Year
  Sex: Male

DRUGS (13)
  1. DASATINIB [Suspect]
     Active Substance: DASATINIB
     Indication: Acute lymphocytic leukaemia
  2. SOLIFENACIN SUCCINATE [Concomitant]
     Active Substance: SOLIFENACIN SUCCINATE
  3. DIETARY SUPPLEMENT [Concomitant]
     Active Substance: DIETARY SUPPLEMENT
  4. DOCUSATE CALCIUM [Concomitant]
     Active Substance: DOCUSATE CALCIUM
  5. ZETIA [Concomitant]
     Active Substance: EZETIMIBE
  6. BACTRIM DS [Concomitant]
     Active Substance: SULFAMETHOXAZOLE\TRIMETHOPRIM
  7. ELIQUIS [Concomitant]
     Active Substance: APIXABAN
  8. LOSARTAN POTASSIUM/HYDROC [Concomitant]
  9. VISION [Concomitant]
  10. TADALAFIL [Concomitant]
     Active Substance: TADALAFIL
  11. AMLODIPINE BESYLATE [Concomitant]
     Active Substance: AMLODIPINE BESYLATE
  12. ACYCLOVIR [Concomitant]
     Active Substance: ACYCLOVIR
  13. PROSCAR [Concomitant]
     Active Substance: FINASTERIDE

REACTIONS (1)
  - Pulmonary hypertension [Unknown]
